FAERS Safety Report 9001269 (Version 1)
Quarter: 2013Q1

REPORT INFORMATION
  Report Type: Spontaneous
  Country: US (occurrence: US)
  Receive Date: 20130107
  Receipt Date: 20130107
  Transmission Date: 20140127
  Serious: Yes (Hospitalization)
  Sender: FDA-Public Use
  Company Number: US-ROCHE-1176028

PATIENT
  Sex: 0

DRUGS (2)
  1. ZELBORAF [Suspect]
     Indication: METASTATIC MALIGNANT MELANOMA
     Route: 065
  2. DHA [Concomitant]

REACTIONS (10)
  - Skin papilloma [Unknown]
  - Fatigue [Unknown]
  - Muscle spasms [Unknown]
  - Convulsion [Unknown]
  - Hypoaesthesia [Unknown]
  - Metastases to central nervous system [Unknown]
  - Alopecia [Unknown]
  - Paraesthesia [Unknown]
  - Limb discomfort [Unknown]
  - Fatigue [Unknown]
